FAERS Safety Report 8321214-4 (Version None)
Quarter: 2012Q2

REPORT INFORMATION
  Report Type: 
  Country: None (occurrence: None)
  Receive Date: 20120430
  Receipt Date: 20120420
  Transmission Date: 20120825
  Serious: Yes (Hospitalization)
  Sender: FDA-Public Use
  Company Number: JP-ASTRAZENECA-2012SE22756

PATIENT
  Age: 73 Year
  Sex: Male

DRUGS (7)
  1. NEXIUM [Suspect]
     Indication: GASTROOESOPHAGEAL REFLUX DISEASE
     Route: 048
     Dates: start: 20120105, end: 20120304
  2. FERRUM [Concomitant]
     Indication: IRON DEFICIENCY ANAEMIA
     Route: 048
     Dates: start: 20120112
  3. ADVAIR DISKUS 100/50 [Concomitant]
     Indication: ASTHMA
     Route: 055
  4. UNIPHYL LA [Concomitant]
  5. GASTROM [Concomitant]
     Route: 065
     Dates: start: 20120105
  6. DEPAS [Concomitant]
     Indication: INSOMNIA
     Route: 048
  7. EVAMYL [Concomitant]
     Indication: INSOMNIA
     Route: 048

REACTIONS (1)
  - OESOPHAGEAL STENOSIS [None]
